FAERS Safety Report 17368057 (Version 1)
Quarter: 2020Q1

REPORT INFORMATION
  Report Type: Report from Study
  Country: CA (occurrence: CA)
  Receive Date: 20200204
  Receipt Date: 20200204
  Transmission Date: 20200409
  Serious: Yes (Other)
  Sender: FDA-Public Use
  Company Number: CA-JNJFOC-20191242292

PATIENT
  Age: 46 Year
  Sex: Female
  Weight: 77.2 kg

DRUGS (2)
  1. STELARA [Suspect]
     Active Substance: USTEKINUMAB
     Indication: CROHN^S DISEASE
     Route: 058
  2. STELARA [Suspect]
     Active Substance: USTEKINUMAB
     Route: 058
     Dates: start: 201908

REACTIONS (7)
  - Product use issue [Unknown]
  - Clostridium difficile infection [Unknown]
  - Incorrect dose administered [Unknown]
  - Cholelithiasis [Unknown]
  - Hepatic steatosis [Unknown]
  - Off label use [Unknown]
  - Hepatic enzyme increased [Unknown]

NARRATIVE: CASE EVENT DATE: 201908
